FAERS Safety Report 10267727 (Version 1)
Quarter: 2014Q2

REPORT INFORMATION
  Report Type: Spontaneous
  Country: US (occurrence: US)
  Receive Date: 20140630
  Receipt Date: 20140630
  Transmission Date: 20141212
  Serious: No
  Sender: FDA-Public Use
  Company Number: US-ASTRAZENECA-2014SE45188

PATIENT
  Age: 67 Year
  Sex: Male

DRUGS (6)
  1. SEROQUEL XR [Suspect]
     Indication: SCHIZOAFFECTIVE DISORDER BIPOLAR TYPE
     Route: 048
  2. SEROQUEL XR [Suspect]
     Indication: MAJOR DEPRESSION
     Route: 048
  3. SEROQUEL XR [Suspect]
     Indication: SCHIZOAFFECTIVE DISORDER BIPOLAR TYPE
     Route: 048
  4. SEROQUEL XR [Suspect]
     Indication: MAJOR DEPRESSION
     Route: 048
  5. FLUPHENAZINE [Concomitant]
     Dosage: Q3WK
  6. DIVALPROEX [Concomitant]
     Dosage: NR
     Route: 048

REACTIONS (4)
  - Blood thyroid stimulating hormone decreased [Unknown]
  - Decreased activity [Unknown]
  - Blood glucose increased [Unknown]
  - Off label use [Unknown]
